FAERS Safety Report 24134700 (Version 3)
Quarter: 2024Q3

REPORT INFORMATION
  Report Type: Spontaneous
  Country: JP (occurrence: JP)
  Receive Date: 20240725
  Receipt Date: 20240918
  Transmission Date: 20241017
  Serious: Yes (Hospitalization, Other)
  Sender: EMD SERONO INC
  Company Number: JP-Merck Healthcare KGaA-2024039611

PATIENT
  Age: 78 Year
  Sex: Male
  Weight: 51 kg

DRUGS (15)
  1. METGLUCO [Suspect]
     Active Substance: METFORMIN HYDROCHLORIDE
     Indication: Type 2 diabetes mellitus
     Route: 048
     Dates: end: 20240607
  2. METGLUCO [Suspect]
     Active Substance: METFORMIN HYDROCHLORIDE
     Route: 048
     Dates: start: 20240608
  3. METGLUCO [Suspect]
     Active Substance: METFORMIN HYDROCHLORIDE
     Route: 048
     Dates: end: 20240703
  4. IMEGLIMIN HYDROCHLORIDE [Suspect]
     Active Substance: IMEGLIMIN HYDROCHLORIDE
     Indication: Type 2 diabetes mellitus
     Route: 048
     Dates: start: 20240531, end: 20240607
  5. IMEGLIMIN HYDROCHLORIDE [Suspect]
     Active Substance: IMEGLIMIN HYDROCHLORIDE
     Route: 048
     Dates: start: 20240608, end: 20240613
  6. IMEGLIMIN HYDROCHLORIDE [Suspect]
     Active Substance: IMEGLIMIN HYDROCHLORIDE
     Route: 048
     Dates: start: 20240620, end: 20240703
  7. TRESIBA [Suspect]
     Active Substance: INSULIN DEGLUDEC
     Indication: Type 2 diabetes mellitus
     Dates: start: 20240520
  8. CANAGLIFLOZIN\TENELIGLIPTIN [Suspect]
     Active Substance: CANAGLIFLOZIN\TENELIGLIPTIN
     Indication: Type 2 diabetes mellitus
     Dates: start: 20240516, end: 20240703
  9. INSULIN LISPRO [Suspect]
     Active Substance: INSULIN LISPRO
     Indication: Type 2 diabetes mellitus
     Dates: start: 20240520, end: 20240530
  10. EPINASTINE HYDROCHLORIDE [Concomitant]
     Active Substance: EPINASTINE HYDROCHLORIDE
     Indication: Drug eruption
     Dosage: ONGOING
     Dates: start: 20240613
  11. NIFEDIPINE [Concomitant]
     Active Substance: NIFEDIPINE
     Indication: Hypertension
     Dates: end: 20240703
  12. AZILSARTAN KAMEDOXOMIL [Concomitant]
     Active Substance: AZILSARTAN KAMEDOXOMIL
     Indication: Hypertension
     Dates: end: 20240703
  13. ATORVASTATIN CALCIUM [Concomitant]
     Active Substance: ATORVASTATIN CALCIUM
     Indication: Dyslipidaemia
     Dates: end: 20240703
  14. LIMAPROST [Concomitant]
     Active Substance: LIMAPROST
     Indication: Lumbar spinal stenosis
     Dosage: ONGOING
  15. VOGLIBOSE [Concomitant]
     Active Substance: VOGLIBOSE
     Indication: Type 2 diabetes mellitus

REACTIONS (40)
  - Pancreatolithiasis [Unknown]
  - Anaemia [Unknown]
  - Subdural hygroma [Unknown]
  - Drug reaction with eosinophilia and systemic symptoms [Recovering/Resolving]
  - Pleural effusion [Unknown]
  - Hepatosplenomegaly [Unknown]
  - Renal cyst [Unknown]
  - Hepatic cyst [Unknown]
  - Sinus tachycardia [Unknown]
  - Lymphadenopathy [Unknown]
  - Hypoalbuminaemia [Unknown]
  - Glycosylated haemoglobin increased [Recovering/Resolving]
  - Lipase increased [Recovered/Resolved]
  - Blood sodium decreased [Not Recovered/Not Resolved]
  - Haematocrit decreased [Not Recovered/Not Resolved]
  - Haemoglobin decreased [Not Recovered/Not Resolved]
  - Mean cell volume increased [Not Recovered/Not Resolved]
  - Glomerular filtration rate decreased [Not Recovered/Not Resolved]
  - Blood creatine phosphokinase decreased [Not Recovered/Not Resolved]
  - Antithrombin III decreased [Unknown]
  - Blood bicarbonate decreased [Unknown]
  - Blood calcium decreased [Unknown]
  - Blood pressure increased [Unknown]
  - Carbon dioxide decreased [Unknown]
  - High density lipoprotein decreased [Unknown]
  - PCO2 decreased [Unknown]
  - Procalcitonin increased [Unknown]
  - Specific gravity urine increased [Recovered/Resolved]
  - Prothrombin level decreased [Recovering/Resolving]
  - Lymphocyte percentage decreased [Recovering/Resolving]
  - Alanine aminotransferase decreased [Recovering/Resolving]
  - Activated partial thromboplastin time prolonged [Recovered/Resolved]
  - Amylase decreased [Recovered/Resolved]
  - Lymphocyte morphology abnormal [Unknown]
  - Red cell distribution width increased [Not Recovered/Not Resolved]
  - International normalised ratio increased [Recovering/Resolving]
  - Decreased appetite [Recovered/Resolved]
  - Blood bilirubin increased [Recovering/Resolving]
  - Gamma-glutamyltransferase increased [Recovering/Resolving]
  - Drug eruption [Recovered/Resolved]

NARRATIVE: CASE EVENT DATE: 20240401
